FAERS Safety Report 25043385 (Version 1)
Quarter: 2025Q1

REPORT INFORMATION
  Report Type: Report from Study
  Country: TN (occurrence: TN)
  Receive Date: 20250305
  Receipt Date: 20250305
  Transmission Date: 20250408
  Serious: Yes (Other)
  Sender: EMD SERONO INC
  Company Number: TN-Merck Healthcare KGaA-2025010146

PATIENT
  Age: 30 Year
  Sex: Male

DRUGS (1)
  1. REBIF [Suspect]
     Active Substance: INTERFERON BETA-1A
     Indication: Multiple sclerosis
     Dates: start: 20160530, end: 202412

REACTIONS (8)
  - Shock [Unknown]
  - Fall [Unknown]
  - Paralysis [Unknown]
  - Urinary incontinence [Unknown]
  - Stress [Unknown]
  - Insomnia [Recovered/Resolved]
  - Vision blurred [Unknown]
  - Therapy interrupted [Unknown]

NARRATIVE: CASE EVENT DATE: 20250101
